FAERS Safety Report 9647531 (Version 1)
Quarter: 2013Q4

REPORT INFORMATION
  Report Type: Spontaneous
  Country: US (occurrence: US)
  Receive Date: 20131028
  Receipt Date: 20131028
  Transmission Date: 20140711
  Serious: Yes (Other)
  Sender: FDA-Public Use
  Company Number: US-BIOGENIDEC-2013BI102961

PATIENT
  Age: 61 Year
  Sex: Male

DRUGS (6)
  1. TECFIDERA [Suspect]
     Indication: MULTIPLE SCLEROSIS
     Route: 048
     Dates: start: 20130628
  2. AMANTADINE [Concomitant]
  3. AMBIEN [Concomitant]
  4. AMPYRA [Concomitant]
  5. ASPIRIN [Concomitant]
  6. BACLOFEN [Concomitant]

REACTIONS (3)
  - Haemoglobin decreased [Unknown]
  - Ulcer [Unknown]
  - Diarrhoea [Unknown]
